FAERS Safety Report 10077716 (Version 2)
Quarter: 2014Q2

REPORT INFORMATION
  Report Type: Spontaneous
  Country: US (occurrence: US)
  Receive Date: 20140414
  Receipt Date: 20140520
  Transmission Date: 20141212
  Serious: Yes (Hospitalization)
  Sender: FDA-Public Use
  Company Number: US-B.I. PHARMACEUTICALS,INC./RIDGEFIELD-2014-BI-16448BP

PATIENT
  Sex: Male
  Weight: 97.5 kg

DRUGS (5)
  1. PRADAXA [Suspect]
     Indication: ATRIAL FIBRILLATION
     Dosage: 300 MG
     Route: 048
     Dates: start: 20110923, end: 20120622
  2. LISINOPRIL [Concomitant]
     Dosage: 5 MG
     Route: 048
  3. DIGOXIN [Concomitant]
     Dosage: 0.125 MG
     Route: 048
  4. ATENOLOL [Concomitant]
     Dosage: 25 MG
     Route: 048
  5. MULTIVITAMINS [Concomitant]
     Dosage: 2 ANZ
     Route: 048

REACTIONS (5)
  - Gastrointestinal haemorrhage [Unknown]
  - Haemorrhagic anaemia [Unknown]
  - Shock haemorrhagic [Unknown]
  - Haematuria [Unknown]
  - Ecchymosis [Unknown]
